FAERS Safety Report 9636627 (Version 2)
Quarter: 2013Q4

REPORT INFORMATION
  Report Type: Report from Study
  Country: US (occurrence: US)
  Receive Date: 20131021
  Receipt Date: 20131031
  Transmission Date: 20140711
  Serious: Yes (Life-Threatening, Other)
  Sender: FDA-Public Use
  Company Number: US-ABBVIE-13P-163-1159087-00

PATIENT
  Age: 20 Year
  Sex: Female
  Weight: 56.75 kg

DRUGS (17)
  1. HUMIRA [Suspect]
     Indication: RECTAL HAEMORRHAGE
     Dates: start: 20130329, end: 201306
  2. HUMIRA [Suspect]
     Indication: ANAL FISTULA
     Dates: start: 20130705
  3. HUMIRA [Suspect]
     Indication: RECTAL ABSCESS
  4. STEROID USE [Suspect]
     Indication: PRODUCT USED FOR UNKNOWN INDICATION
  5. ZOFRAN [Concomitant]
     Indication: NAUSEA
  6. TYLENOL [Concomitant]
     Indication: ABDOMINAL PAIN
  7. OXYCODONE [Concomitant]
     Indication: ABDOMINAL PAIN
  8. PREDNISOLONE [Concomitant]
     Indication: RENAL TRANSPLANT
  9. CRESTOR [Concomitant]
     Indication: BLOOD CHOLESTEROL INCREASED
  10. MULTIVITAMIN [Concomitant]
     Indication: PRODUCT USED FOR UNKNOWN INDICATION
  11. LEFLUNOMIDE [Concomitant]
     Indication: BK VIRUS INFECTION
  12. PROGRAF [Concomitant]
     Indication: RENAL TRANSPLANT
  13. IMODIUM [Concomitant]
     Indication: PRODUCT USED FOR UNKNOWN INDICATION
  14. ZANTAC [Concomitant]
     Indication: PRODUCT USED FOR UNKNOWN INDICATION
  15. PROBIOTICS [Concomitant]
     Indication: PRODUCT USED FOR UNKNOWN INDICATION
  16. BACTRIM [Concomitant]
     Indication: PROPHYLAXIS
  17. PYRITHIONE ZINC [Concomitant]
     Indication: PRODUCT USED FOR UNKNOWN INDICATION

REACTIONS (8)
  - Convulsion [Recovered/Resolved]
  - Cardio-respiratory arrest [Recovered/Resolved]
  - Respiratory distress [Recovered/Resolved]
  - Adrenal insufficiency [Not Recovered/Not Resolved]
  - Anal fistula [Recovered/Resolved]
  - Rectal abscess [Recovered/Resolved]
  - Neuropathy peripheral [Not Recovered/Not Resolved]
  - Rectal haemorrhage [Recovered/Resolved]
